FAERS Safety Report 8232202-0 (Version None)
Quarter: 2012Q1

REPORT INFORMATION
  Report Type: 
  Country: None (occurrence: None)
  Receive Date: 20120320
  Receipt Date: 20120308
  Transmission Date: 20120608
  Serious: Yes (Other)
  Sender: FDA-Public Use
  Company Number: 2012S1000302

PATIENT
  Age: 63 Year
  Sex: Male

DRUGS (3)
  1. LIVALO [Suspect]
     Dosage: 2 MG;1X;PO
     Route: 048
     Dates: start: 20111208, end: 20120220
  2. IBUPROFEN [Concomitant]
  3. BISOPROLOL W/HYDROCHLOROTHIAZIDE /01166101/ [Concomitant]

REACTIONS (1)
  - ALANINE AMINOTRANSFERASE INCREASED [None]
